FAERS Safety Report 6349304-6 (Version None)
Quarter: 2009Q3

REPORT INFORMATION
  Report Type: 
  Country: None (occurrence: None)
  Receive Date: 20090911
  Receipt Date: 20090903
  Transmission Date: 20100115
  Serious: Yes (Hospitalization)
  Sender: FDA-Public Use
  Company Number: B0585649A

PATIENT
  Sex: Male

DRUGS (8)
  1. VALTREX [Suspect]
     Indication: HERPES ZOSTER
     Dosage: 500MG THREE TIMES PER DAY
     Route: 048
     Dates: start: 20090718, end: 20090721
  2. LOXONIN [Concomitant]
     Indication: HERPES ZOSTER
     Route: 048
     Dates: start: 20090718, end: 20090721
  3. RUEFRIEN [Concomitant]
     Indication: HERPES ZOSTER
     Route: 048
     Dates: start: 20090718, end: 20090721
  4. AMARYL [Concomitant]
     Route: 048
  5. METHYCOBAL [Concomitant]
     Dosage: 1500MCG PER DAY
     Route: 048
  6. BLOPRESS [Concomitant]
     Dosage: 8MG PER DAY
     Route: 048
  7. ATELEC [Concomitant]
     Dosage: 10MG PER DAY
     Route: 048
  8. SALOBEL [Concomitant]
     Dosage: 100MG PER DAY
     Route: 048

REACTIONS (5)
  - ABNORMAL BEHAVIOUR [None]
  - ENCEPHALOPATHY [None]
  - MENTAL DISORDER [None]
  - RENAL FAILURE ACUTE [None]
  - TOXIC ENCEPHALOPATHY [None]
